FAERS Safety Report 5721308-3 (Version None)
Quarter: 2008Q2

REPORT INFORMATION
  Report Type: 
  Country: None (occurrence: None)
  Receive Date: 20080429
  Receipt Date: 20080417
  Transmission Date: 20081010
  Serious: Yes (Other)
  Sender: FDA-Public Use
  Company Number: CA-BAYER-200711960GDS

PATIENT
  Age: 41 Year
  Sex: Female

DRUGS (1)
  1. ASPIRIN [Suspect]
     Indication: FIBROMYALGIA
     Dosage: TOTAL DAILY DOSE: 1500 MG
     Route: 048
     Dates: start: 20051110, end: 20051113

REACTIONS (4)
  - BLOOD CREATININE INCREASED [None]
  - DRUG LEVEL INCREASED [None]
  - THERAPEUTIC AGENT TOXICITY [None]
  - TINNITUS [None]
